FAERS Safety Report 17963041 (Version 1)
Quarter: 2020Q2

REPORT INFORMATION
  Report Type: Spontaneous
  Country: US (occurrence: US)
  Receive Date: 20200630
  Receipt Date: 20200630
  Transmission Date: 20200714
  Serious: Yes (Hospitalization)
  Sender: FDA-Public Use
  Company Number: None

PATIENT
  Age: 25 Year
  Sex: Female
  Weight: 66.1 kg

DRUGS (5)
  1. LOVENOX 40 MG SUBCUTANEOUSLY DAILY [Concomitant]
     Dates: start: 20200622, end: 20200626
  2. AZITHROMYCIN ANHYDROUS. [Suspect]
     Active Substance: AZITHROMYCIN ANHYDROUS
     Indication: PNEUMONIA
     Route: 042
     Dates: start: 20200624, end: 20200624
  3. ROCEPHIN 1 GRAM  IV DAILY [Concomitant]
     Dates: start: 20200621, end: 20200626
  4. METRONIDAZOLE 500 MG IV EVERY 8 HOURS [Concomitant]
     Dates: start: 20200623, end: 20200627
  5. POTASSIUM CHLORIDE 20 MEQ PO DAILY [Concomitant]
     Dates: start: 20200624, end: 20200627

REACTIONS (2)
  - Deafness [None]
  - Tinnitus [None]

NARRATIVE: CASE EVENT DATE: 20200624
